FAERS Safety Report 14123494 (Version 1)
Quarter: 2017Q4

REPORT INFORMATION
  Report Type: Spontaneous
  Country: US (occurrence: US)
  Receive Date: 20171025
  Receipt Date: 20171025
  Transmission Date: 20180321
  Serious: No
  Sender: FDA-Public Use
  Company Number: US-PERRIGO-17US026521

PATIENT
  Sex: Female
  Weight: 63.49 kg

DRUGS (9)
  1. NICOTINE POLACRILEX [Suspect]
     Active Substance: NICOTINE
     Indication: SMOKING CESSATION THERAPY
     Dosage: 2 MG, UP TO 10 TIMES DAILY, PRN
     Route: 002
     Dates: start: 2015, end: 2017
  2. ALPRAZOLAM. [Concomitant]
     Active Substance: ALPRAZOLAM
     Indication: NEURALGIA
     Dosage: UNK
     Route: 048
     Dates: start: 2003
  3. MAGNESIUM [Concomitant]
     Active Substance: MAGNESIUM
     Indication: SUPPLEMENTATION THERAPY
     Dosage: UNK
     Route: 048
  4. ROSUVASTATIN. [Concomitant]
     Active Substance: ROSUVASTATIN
     Indication: BLOOD CHOLESTEROL INCREASED
     Dosage: UNK
     Route: 048
  5. OXYBUTYNIN. [Concomitant]
     Active Substance: OXYBUTYNIN CHLORIDE
     Indication: BLADDER DISORDER
     Dosage: UNK
     Route: 048
  6. HORMONES [Concomitant]
     Active Substance: UNSPECIFIED INGREDIENT
     Indication: MENOPAUSAL SYMPTOMS
     Dosage: UNK
     Route: 065
  7. NICOTINE POLACRILEX [Suspect]
     Active Substance: NICOTINE
     Dosage: 2 MG, UP TO 10 TIMES DAILY, PRN
     Route: 002
     Dates: start: 201708, end: 20170818
  8. CITRUCEL [Concomitant]
     Active Substance: METHYLCELLULOSE (4000 MPA.S)
     Indication: SUPPLEMENTATION THERAPY
     Dosage: UNK
     Route: 048
  9. VITAMIN D [Concomitant]
     Active Substance: CHOLECALCIFEROL
     Indication: MENOPAUSAL SYMPTOMS
     Dosage: UNK
     Route: 048

REACTIONS (3)
  - Nausea [Recovered/Resolved]
  - Toothache [Recovered/Resolved]
  - Abdominal discomfort [Recovered/Resolved]

NARRATIVE: CASE EVENT DATE: 2015
